FAERS Safety Report 9869229 (Version 1)
Quarter: 2014Q1

REPORT INFORMATION
  Report Type: Report from Study
  Country: DE (occurrence: DE)
  Receive Date: 20140205
  Receipt Date: 20140205
  Transmission Date: 20141002
  Serious: No
  Sender: FDA-Public Use
  Company Number: PHHY2014DE012979

PATIENT
  Sex: Male

DRUGS (6)
  1. AMN107 [Suspect]
     Indication: CHRONIC MYELOID LEUKAEMIA
     Dosage: 800 MG, PER DAY
     Route: 048
     Dates: start: 20131101
  2. RAMIPRIL [Concomitant]
     Dates: start: 20131104
  3. METOHEXAL [Concomitant]
     Dates: start: 20131104
  4. PANTOZOL [Concomitant]
     Dosage: 40 MG, UNK
     Dates: start: 20080624
  5. ALLOPURINOL [Concomitant]
     Dosage: 300 MG, UNK
     Dates: start: 20131104
  6. ATORVASTATIN [Concomitant]
     Dates: start: 20131104

REACTIONS (1)
  - Platelet disorder [Not Recovered/Not Resolved]
